FAERS Safety Report 12837742 (Version 1)
Quarter: 2016Q4

REPORT INFORMATION
  Report Type: Spontaneous
  Country: TZ (occurrence: TZ)
  Receive Date: 20161012
  Receipt Date: 20161012
  Transmission Date: 20170207
  Serious: Yes (Death, Other)
  Sender: FDA-Public Use
  Company Number: TZ-CIPLA LTD.-2016TZ19144

PATIENT

DRUGS (7)
  1. RIFAMPICIN [Suspect]
     Active Substance: RIFAMPIN
     Dosage: 150 MG, DAILY
     Route: 065
  2. ISONIAZID. [Suspect]
     Active Substance: ISONIAZID
     Indication: BONE TUBERCULOSIS
     Dosage: 75 MG, DAILY
     Route: 065
  3. PYRAZINAMIDE. [Suspect]
     Active Substance: PYRAZINAMIDE
     Indication: BONE TUBERCULOSIS
     Dosage: 400 MG, DAILY
     Route: 065
  4. TENOFOVIR/LAMIVUDINE/EFAVIRENZ TABLET [Suspect]
     Active Substance: EFAVIRENZ\LAMIVUDINE\TENOFOVIR
     Indication: HIV INFECTION
     Dosage: UNK
     Route: 065
     Dates: start: 2009
  5. RIFAMPICIN [Suspect]
     Active Substance: RIFAMPIN
     Indication: BONE TUBERCULOSIS
     Dosage: 150 MG, DAILY
     Route: 065
  6. ETHAMBUTOL HYDROCHLORIDE. [Suspect]
     Active Substance: ETHAMBUTOL HYDROCHLORIDE
     Indication: BONE TUBERCULOSIS
     Dosage: 275 MG, DAILY
     Route: 065
  7. ISONIAZID. [Suspect]
     Active Substance: ISONIAZID
     Dosage: 75 MG, DAILY
     Route: 065

REACTIONS (3)
  - Death [Fatal]
  - Bone tuberculosis [Unknown]
  - Treatment noncompliance [Unknown]
